FAERS Safety Report 11180305 (Version 2)
Quarter: 2015Q2

REPORT INFORMATION
  Report Type: Report from Study
  Country: JP (occurrence: None)
  Receive Date: 20150609
  Receipt Date: 20150622
  Transmission Date: 20150821
  Serious: Yes (Other)
  Sender: FDA-Public Use
  Company Number: 2015FE01882

PATIENT
  Age: 72 Year
  Sex: Male
  Weight: 55 kg

DRUGS (2)
  1. DEGARELIX [Suspect]
     Active Substance: DEGARELIX
     Indication: PROSTATE CANCER
     Dosage: ONCE/SINGLE
     Route: 058
     Dates: start: 20140121, end: 20140121
  2. CALONAL (PARACETAMOL) [Concomitant]

REACTIONS (3)
  - Colon cancer [None]
  - Large intestine polyp [None]
  - Adenocarcinoma of colon [None]

NARRATIVE: CASE EVENT DATE: 20141029
